FAERS Safety Report 25698406 (Version 1)
Quarter: 2025Q3

REPORT INFORMATION
  Report Type: Spontaneous
  Country: BR (occurrence: BR)
  Receive Date: 20250819
  Receipt Date: 20250819
  Transmission Date: 20251021
  Serious: Yes (Life-Threatening)
  Sender: NOVARTIS
  Company Number: BR-002147023-NVSC2025BR128885

PATIENT

DRUGS (1)
  1. IMATINIB [Suspect]
     Active Substance: IMATINIB
     Indication: Product used for unknown indication
     Route: 065

REACTIONS (1)
  - Toxicity to various agents [Unknown]
